FAERS Safety Report 10216226 (Version 1)
Quarter: 2014Q2

REPORT INFORMATION
  Report Type: Spontaneous
  Country: US (occurrence: None)
  Receive Date: 20140603
  Receipt Date: 20140603
  Transmission Date: 20141212
  Serious: Yes (Other)
  Sender: FDA-Public Use
  Company Number: None

PATIENT
  Age: 50 Year
  Sex: Male
  Weight: 94.35 kg

DRUGS (1)
  1. TEMOZOLOMIDE [Suspect]
     Indication: PRODUCT USED FOR UNKNOWN INDICATION
     Dosage: 420MG/3 CAPSULES ?5 DAY MONTHLY CYCL?TAKEN BY MOUTH
     Route: 048

REACTIONS (1)
  - Incorrect product storage [None]
